FAERS Safety Report 8794884 (Version 2)
Quarter: 2015Q3

REPORT INFORMATION
  Report Type: Report from Study
  Country: US (occurrence: US)
  Receive Date: 20120917
  Receipt Date: 20150702
  Transmission Date: 20151125
  Serious: Yes (Death, Other)
  Sender: FDA-Public Use
  Company Number: US-ROCHE-1129337

PATIENT
  Sex: Female

DRUGS (26)
  1. 5-FLUOROURACIL [Concomitant]
     Active Substance: FLUOROURACIL
  2. LEUCOVORIN. [Concomitant]
     Active Substance: LEUCOVORIN
  3. GEMZAR [Concomitant]
     Active Substance: GEMCITABINE HYDROCHLORIDE
     Route: 065
  4. ACTIVASE [Concomitant]
     Active Substance: ALTEPLASE
     Route: 065
  5. BENADRYL [Concomitant]
     Active Substance: DIPHENHYDRAMINE HYDROCHLORIDE
     Route: 042
  6. KYTRIL [Concomitant]
     Active Substance: GRANISETRON HYDROCHLORIDE
     Route: 065
  7. PEPCID [Concomitant]
     Active Substance: FAMOTIDINE
     Route: 065
  8. AVASTIN [Suspect]
     Active Substance: BEVACIZUMAB
     Indication: BREAST CANCER FEMALE
     Dosage: START DATE:30/JAN/2006
     Route: 042
  9. EPOGEN [Concomitant]
     Active Substance: ERYTHROPOIETIN
     Route: 065
  10. ATIVAN [Concomitant]
     Active Substance: LORAZEPAM
     Route: 065
  11. NAVELBINE [Concomitant]
     Active Substance: VINORELBINE TARTRATE
     Route: 065
  12. ROCEPHIN [Concomitant]
     Active Substance: CEFTRIAXONE SODIUM
     Route: 065
  13. TYLENOL [Concomitant]
     Active Substance: ACETAMINOPHEN
     Route: 048
  14. MAXZIDE [Concomitant]
     Active Substance: HYDROCHLOROTHIAZIDE\TRIAMTERENE
  15. HERCEPTIN [Suspect]
     Active Substance: TRASTUZUMAB
     Indication: BREAST CANCER FEMALE
     Route: 065
  16. PROCRIT [Concomitant]
     Active Substance: ERYTHROPOIETIN
     Route: 065
  17. NAVELBINE [Concomitant]
     Active Substance: VINORELBINE TARTRATE
     Route: 065
  18. ZOMETA [Concomitant]
     Active Substance: ZOLEDRONIC ACID
     Route: 042
  19. EPOGEN [Concomitant]
     Active Substance: ERYTHROPOIETIN
     Route: 065
  20. ANZEMET [Concomitant]
     Active Substance: DOLASETRON MESYLATE
     Route: 065
  21. BENADRYL [Concomitant]
     Active Substance: DIPHENHYDRAMINE HYDROCHLORIDE
     Route: 048
  22. DECADRON [Concomitant]
     Active Substance: DEXAMETHASONE
     Route: 065
  23. TAXOTERE [Concomitant]
     Active Substance: DOCETAXEL
     Route: 065
  24. ALOXI [Concomitant]
     Active Substance: PALONOSETRON HYDROCHLORIDE
     Route: 065
  25. ARANESP [Concomitant]
     Active Substance: DARBEPOETIN ALFA
     Route: 065
  26. POTASSIUM CHLORIDE. [Concomitant]
     Active Substance: POTASSIUM CHLORIDE
     Route: 065

REACTIONS (38)
  - Cough [Unknown]
  - Pain in jaw [Unknown]
  - Oral mucosal erythema [Unknown]
  - Sinusitis [Unknown]
  - Abdominal pain [Unknown]
  - Oral discomfort [Unknown]
  - Flushing [Unknown]
  - Chest pain [Unknown]
  - Anaemia [Unknown]
  - Pain [Unknown]
  - Osteoporosis [Unknown]
  - Depression [Unknown]
  - Weight decreased [Unknown]
  - Off label use [Unknown]
  - Death [Fatal]
  - Arteriosclerosis [Unknown]
  - Disease progression [Unknown]
  - Ocular hyperaemia [Unknown]
  - Renal failure [Unknown]
  - Vomiting [Unknown]
  - Arthralgia [Unknown]
  - Diarrhoea [Unknown]
  - Blood pressure increased [Unknown]
  - Gingival pain [Unknown]
  - Oedema peripheral [Unknown]
  - Eye pain [Unknown]
  - Pleural calcification [Unknown]
  - Fatigue [Unknown]
  - Pyrexia [Unknown]
  - Spinal osteoarthritis [Unknown]
  - Pain in extremity [Unknown]
  - Eye irritation [Unknown]
  - Nausea [Unknown]
  - Musculoskeletal stiffness [Unknown]
  - Limb discomfort [Unknown]
  - Dyspnoea exertional [Unknown]
  - Mastication disorder [Unknown]
  - Skin fissures [Unknown]
